FAERS Safety Report 5477708-2 (Version None)
Quarter: 2007Q4

REPORT INFORMATION
  Report Type: 
  Country: None (occurrence: None)
  Receive Date: 20071003
  Receipt Date: 20071003
  Transmission Date: 20080405
  Serious: Yes (Hospitalization)
  Sender: FDA-Public Use
  Company Number: None

PATIENT
  Age: 65 Year
  Sex: Male

DRUGS (1)
  1. ATENOLOL [Suspect]
     Dosage: 12.5MG BID PO
     Route: 048
     Dates: start: 20070420, end: 20070925

REACTIONS (2)
  - BRADYCARDIA [None]
  - DIZZINESS [None]
